FAERS Safety Report 21294989 (Version 1)
Quarter: 2022Q3

REPORT INFORMATION
  Report Type: Spontaneous
  Country: US (occurrence: US)
  Receive Date: 20220905
  Receipt Date: 20220905
  Transmission Date: 20221027
  Serious: Yes (Other)
  Sender: FDA-Public Use
  Company Number: US-BAXTER-2022BAX018504

PATIENT
  Age: 31 Year
  Sex: Female
  Weight: 77.1 kg

DRUGS (8)
  1. SODIUM CHLORIDE [Suspect]
     Active Substance: SODIUM CHLORIDE
     Indication: Haematemesis
     Dosage: UNREPORTED DOSE AND FREQUENCY
     Route: 042
     Dates: start: 20220805
  2. SODIUM CHLORIDE [Suspect]
     Active Substance: SODIUM CHLORIDE
     Indication: Metabolic disorder
  3. CAPLYTA [Suspect]
     Active Substance: LUMATEPERONE
     Indication: Bipolar disorder
     Dosage: 42 MILLIGRAMS (MG) ONCE DAILY, THERAPY WAS INTERRUPTED BECAUSE DOCTOR^S OFFCE WAS SHUT DOWN FOR 2 WE
     Route: 048
     Dates: start: 202206
  4. CAPLYTA [Suspect]
     Active Substance: LUMATEPERONE
     Dosage: 42 MILLIGRAM (MG) ONCE DAILY
     Route: 065
     Dates: start: 20220711, end: 202208
  5. ADDERALL [Suspect]
     Active Substance: AMPHETAMINE ASPARTATE\AMPHETAMINE SULFATE\DEXTROAMPHETAMINE SACCHARATE\DEXTROAMPHETAMINE SULFATE
     Dosage: 30 MILLIGRAM (MG)
     Route: 065
  6. CANNABIS SATIVA SUBSP. INDICA TOP [Suspect]
     Active Substance: CANNABIS SATIVA SUBSP. INDICA TOP
     Dosage: UNK
     Route: 065
  7. METHAMPHETAMINE [Suspect]
     Active Substance: METHAMPHETAMINE
     Dosage: UNK
     Route: 065
  8. HEATHER [Concomitant]
     Active Substance: NORETHINDRONE
     Indication: Contraception
     Dosage: UNK
     Route: 065

REACTIONS (5)
  - Dizziness [Unknown]
  - Haematemesis [Recovered/Resolved]
  - Metabolic disorder [Recovered/Resolved]
  - Drug screen positive [Unknown]
  - Therapy interrupted [Recovered/Resolved]

NARRATIVE: CASE EVENT DATE: 20220601
